FAERS Safety Report 16795486 (Version 1)
Quarter: 2019Q4

REPORT INFORMATION
  Report Type: Spontaneous
  Country: US (occurrence: US)
  Receive Date: 20190910
  Receipt Date: 20190910
  Transmission Date: 20200122
  Serious: Yes (Other)
  Sender: FDA-Public Use
  Company Number: None

PATIENT
  Age: 43 Year
  Sex: Female
  Weight: 90 kg

DRUGS (11)
  1. LOSATAN [Concomitant]
     Active Substance: LOSARTAN
  2. PROBIOTICS [Concomitant]
     Active Substance: PROBIOTICS NOS
  3. MAGNESIUM INJECTION [Concomitant]
  4. MULTIVIT [Concomitant]
     Active Substance: VITAMINS
  5. DEXILANT [Concomitant]
     Active Substance: DEXLANSOPRAZOLE
  6. VALACYCLOVIR [Concomitant]
     Active Substance: VALACYCLOVIR HYDROCHLORIDE
  7. DULOXETINE. [Concomitant]
     Active Substance: DULOXETINE
  8. ZYRTEC [Concomitant]
     Active Substance: CETIRIZINE HYDROCHLORIDE
  9. HYDROXYCHLOROQUINE [Suspect]
     Active Substance: HYDROXYCHLOROQUINE
     Indication: SYSTEMIC LUPUS ERYTHEMATOSUS
     Dosage: ?          QUANTITY:90 TABLET(S);?
     Route: 048
     Dates: start: 20190524, end: 20190910
  10. SINGULAIR [Concomitant]
     Active Substance: MONTELUKAST SODIUM
  11. VITAMIN B12 [Concomitant]
     Active Substance: CYANOCOBALAMIN

REACTIONS (15)
  - Dry mouth [None]
  - Depression [None]
  - Feeding disorder [None]
  - Migraine [None]
  - Sleep disorder [None]
  - Fatigue [None]
  - Abdominal pain upper [None]
  - Condition aggravated [None]
  - Anger [None]
  - Malaise [None]
  - Headache [None]
  - Diarrhoea [None]
  - Irritability [None]
  - Social avoidant behaviour [None]
  - Urticaria [None]

NARRATIVE: CASE EVENT DATE: 20190901
